FAERS Safety Report 11469433 (Version 2)
Quarter: 2015Q3

REPORT INFORMATION
  Report Type: Spontaneous
  Country: US (occurrence: US)
  Receive Date: 20150903
  Receipt Date: 20150903
  Transmission Date: 20151125
  Serious: No
  Sender: FDA-Public Use
  Company Number: US-ELI_LILLY_AND_COMPANY-US201110001451

PATIENT
  Sex: Female
  Weight: 47.62 kg

DRUGS (1)
  1. CYMBALTA [Suspect]
     Active Substance: DULOXETINE HYDROCHLORIDE
     Indication: MIGRAINE
     Dosage: 60 MG, UNK
     Dates: start: 2009

REACTIONS (4)
  - Weight decreased [Recovered/Resolved]
  - Alopecia [Recovered/Resolved]
  - Diarrhoea [Unknown]
  - Off label use [Recovered/Resolved]
